FAERS Safety Report 4605748-1 (Version None)
Quarter: 2005Q2

REPORT INFORMATION
  Report Type: 
  Country: None (occurrence: None)
  Receive Date: 20050214
  Receipt Date: 20041222
  Transmission Date: 20051028
  Serious: No
  Sender: FDA-Public Use
  Company Number: USA041286866

PATIENT
  Age: 50 Year
  Sex: Male

DRUGS (10)
  1. CIALIS [Suspect]
     Indication: ERECTILE DYSFUNCTION
     Dosage: 20 MG AS NEEDED
     Dates: start: 20040901
  2. TESTOSTERONE [Concomitant]
  3. ALLERGY SHOT [Concomitant]
  4. BIOTIN [Concomitant]
  5. FISH OIL [Concomitant]
  6. VITAMIN CAP [Concomitant]
  7. ASPIRIN [Concomitant]
  8. GUAIFENESIN (GUAIFENESIN L.A.) [Concomitant]
  9. SIMETHICONE [Concomitant]
  10. PSEUDOEPHEDRINE HCL [Concomitant]

REACTIONS (4)
  - DRUG INEFFECTIVE [None]
  - DYSPEPSIA [None]
  - FLUSHING [None]
  - MYALGIA [None]
